FAERS Safety Report 22656041 (Version 1)
Quarter: 2023Q2

REPORT INFORMATION
  Report Type: Spontaneous
  Country: US (occurrence: US)
  Receive Date: 20230629
  Receipt Date: 20230629
  Transmission Date: 20230721
  Serious: Yes (Other)
  Sender: FDA-Public Use
  Company Number: US-PFIZER INC-PV202200061140

PATIENT
  Age: 72 Year
  Sex: Female
  Weight: 47.8 kg

DRUGS (4)
  1. IBRANCE [Suspect]
     Active Substance: PALBOCICLIB
     Indication: Breast cancer metastatic
     Dosage: TAKE 1 TABLET DAYS 1-21 EVERY 28 DAYS
  2. IBRANCE [Suspect]
     Active Substance: PALBOCICLIB
     Dosage: 75 MG TABLET SWALLOW WHOLE
     Dates: start: 20220812
  3. IBRANCE [Suspect]
     Active Substance: PALBOCICLIB
     Dosage: TAKE 1 TABLET DAYS 1-21 EVERY 28 DAYS, SWALLOW WHOLE
     Route: 048
     Dates: start: 20221121
  4. XANAX [Concomitant]
     Active Substance: ALPRAZOLAM
     Dosage: 1 DF, AS NEEDED (AT BEDTIME)
     Route: 048
     Dates: start: 20220823, end: 20220922

REACTIONS (1)
  - Neutropenia [Unknown]
